FAERS Safety Report 5201890-5 (Version None)
Quarter: 2006Q4

REPORT INFORMATION
  Report Type: 
  Country: None (occurrence: None)
  Receive Date: 20061010
  Receipt Date: 20051006
  Transmission Date: 20070319
  Serious: Yes (Death)
  Sender: FDA-Public Use
  Company Number: 2005-10-0277

PATIENT
  Sex: Female

DRUGS (2)
  1. TEMODAR [Suspect]
     Indication: ASTROCYTOMA
     Dosage: 140 MG HS ORAL
     Route: 048
  2. RADIATION THERAPY FOR ASTROCYTOMA [Concomitant]

REACTIONS (2)
  - DISEASE PROGRESSION [None]
  - THROMBOCYTOPENIA [None]
